FAERS Safety Report 9193664 (Version 7)
Quarter: 2013Q3

REPORT INFORMATION
  Report Type: Report from Study
  Country: ID (occurrence: ID)
  Receive Date: 20130327
  Receipt Date: 20130920
  Transmission Date: 20140515
  Serious: Yes (Life-Threatening)
  Sender: FDA-Public Use
  Company Number: ID-GLAXOSMITHKLINE-B0877859A

PATIENT
  Age: 63 Year
  Sex: Male
  Weight: 83 kg

DRUGS (6)
  1. FLUTICASONE FUROATE [Suspect]
     Indication: CHRONIC OBSTRUCTIVE PULMONARY DISEASE
     Dates: start: 20130109, end: 20130218
  2. SIMVASTATIN [Concomitant]
     Indication: DYSLIPIDAEMIA
     Dosage: 20MG PER DAY
     Route: 048
     Dates: start: 20130107
  3. AMBROXOL [Concomitant]
     Indication: CHRONIC OBSTRUCTIVE PULMONARY DISEASE
     Dosage: 720MG CUMULATIVE DOSE
     Route: 048
     Dates: start: 20130206, end: 20130223
  4. MEPTIN [Concomitant]
     Indication: BRONCHOSPASM
     Route: 048
     Dates: start: 20130206, end: 20130213
  5. BISOLVON [Concomitant]
     Indication: CHRONIC OBSTRUCTIVE PULMONARY DISEASE
     Dosage: 20DROP PER DAY
     Route: 055
     Dates: start: 20130206, end: 20130206
  6. BEROTEC [Concomitant]
     Indication: BRONCHOSPASM
     Dosage: 1MG PER DAY
     Route: 055
     Dates: start: 20130206

REACTIONS (1)
  - Chronic obstructive pulmonary disease [Recovered/Resolved]
